FAERS Safety Report 18414705 (Version 1)
Quarter: 2020Q4

REPORT INFORMATION
  Report Type: Spontaneous
  Country: GB (occurrence: GB)
  Receive Date: 20201022
  Receipt Date: 20201022
  Transmission Date: 20210114
  Serious: Yes (Hospitalization)
  Sender: FDA-Public Use
  Company Number: GB-PFIZER INC-2020404136

PATIENT
  Age: 31 Year
  Sex: Female
  Weight: 91.62 kg

DRUGS (2)
  1. DOXYCYCLINE MONOHYDRATE [Suspect]
     Active Substance: DOXYCYCLINE
     Indication: PELVIC INFECTION
     Dosage: 200 MG, DAILY (MORNING AND EVENING)
     Route: 048
     Dates: start: 20200924, end: 20200924
  2. METRONIDAZOLE. [Suspect]
     Active Substance: METRONIDAZOLE
     Indication: PELVIC INFECTION
     Dosage: 800 MG, DAILY (MORNING AND EVENING)
     Route: 048
     Dates: start: 20200924, end: 20200924

REACTIONS (3)
  - Diarrhoea [Not Recovered/Not Resolved]
  - Dyspnoea [Recovered/Resolved]
  - Dysgeusia [Not Recovered/Not Resolved]

NARRATIVE: CASE EVENT DATE: 20200924
